FAERS Safety Report 5740993-3 (Version None)
Quarter: 2008Q2

REPORT INFORMATION
  Report Type: 
  Country: None (occurrence: None)
  Receive Date: 20080516
  Receipt Date: 20080507
  Transmission Date: 20081010
  Serious: Yes (Other)
  Sender: FDA-Public Use
  Company Number: CL-PFIZER INC-2008037638

PATIENT
  Age: 67 Year
  Sex: Female

DRUGS (1)
  1. CHANTIX [Suspect]
     Indication: SMOKING CESSATION THERAPY
     Route: 048
     Dates: start: 20050101, end: 20050101

REACTIONS (4)
  - DEPRESSION [None]
  - IRRITABILITY [None]
  - MEMORY IMPAIRMENT [None]
  - SLEEP DISORDER [None]
